FAERS Safety Report 9066303 (Version 1)
Quarter: 2013Q1

REPORT INFORMATION
  Report Type: Report from Study
  Country: US (occurrence: US)
  Receive Date: 20130129
  Receipt Date: 20130129
  Transmission Date: 20140127
  Serious: No
  Sender: FDA-Public Use
  Company Number: US-ABBOTT-12P-163-0952218-00

PATIENT
  Age: 26 Year
  Sex: Female

DRUGS (4)
  1. HUMIRA 40 MG/0.8 ML PEN [Suspect]
     Indication: PSORIASIS
     Dates: start: 201206
  2. METHOTREXATE [Concomitant]
     Indication: PSORIASIS
     Dosage: FOUR PILLS WEEKLY
  3. LABETALOL [Concomitant]
     Indication: BLOOD PRESSURE
  4. METFORMIN [Concomitant]
     Indication: GLUCOSE TOLERANCE IMPAIRED
     Dosage: 500MG DAILY

REACTIONS (1)
  - Psoriasis [Not Recovered/Not Resolved]
